FAERS Safety Report 8387638-4 (Version None)
Quarter: 2012Q2

REPORT INFORMATION
  Report Type: 
  Country: None (occurrence: None)
  Receive Date: 20120525
  Receipt Date: 20120524
  Transmission Date: 20120825
  Serious: Yes (Death, Other)
  Sender: FDA-Public Use
  Company Number: PHHY2012DE044498

PATIENT
  Age: 54 Year
  Sex: Male

DRUGS (4)
  1. PREDNISOLONE [Suspect]
     Indication: IMMUNOSUPPRESSION
     Dosage: 05 MG, QD
  2. SIROLIMUS [Suspect]
     Indication: IMMUNOSUPPRESSION
     Dosage: 1.5 MG, QD
  3. PREDNISOLONE [Suspect]
     Dosage: 40 MG/M2/D (1-14
  4. CYCLOSPORINE [Suspect]
     Indication: IMMUNOSUPPRESSION
     Dosage: 45 MG, QD

REACTIONS (3)
  - PLEURAL EFFUSION [None]
  - EPSTEIN-BARR VIRUS INFECTION [None]
  - PLASMABLASTIC LYMPHOMA [None]
